FAERS Safety Report 23152447 (Version 1)
Quarter: 2023Q4

REPORT INFORMATION
  Report Type: Spontaneous
  Country: US (occurrence: US)
  Receive Date: 20231107
  Receipt Date: 20231107
  Transmission Date: 20240109
  Serious: No
  Sender: FDA-Public Use
  Company Number: US-ELI_LILLY_AND_COMPANY-US202310003112

PATIENT
  Sex: Female

DRUGS (7)
  1. MOUNJARO [Suspect]
     Active Substance: TIRZEPATIDE
     Indication: Sleeve gastrectomy
     Dosage: 5 MG, UNKNOWN
     Route: 065
     Dates: start: 2022
  2. MOUNJARO [Suspect]
     Active Substance: TIRZEPATIDE
     Indication: Hepatic steatosis
     Dosage: 2.5 MG, UNKNOWN
     Route: 065
     Dates: end: 202309
  3. MOUNJARO [Suspect]
     Active Substance: TIRZEPATIDE
     Indication: Polycystic ovarian syndrome
  4. MOUNJARO [Suspect]
     Active Substance: TIRZEPATIDE
     Indication: Weight increased
  5. MOUNJARO [Suspect]
     Active Substance: TIRZEPATIDE
     Indication: Dumping syndrome
  6. MOUNJARO [Suspect]
     Active Substance: TIRZEPATIDE
     Indication: Nausea
  7. OZEMPIC [Concomitant]
     Active Substance: SEMAGLUTIDE
     Indication: Product used for unknown indication
     Route: 065

REACTIONS (3)
  - Off label use [Unknown]
  - Nausea [Unknown]
  - Vomiting [Unknown]

NARRATIVE: CASE EVENT DATE: 20220101
